FAERS Safety Report 7536419-X (Version None)
Quarter: 2011Q2

REPORT INFORMATION
  Report Type: 
  Country: None (occurrence: None)
  Receive Date: 20110609
  Receipt Date: 20110530
  Transmission Date: 20111010
  Serious: Yes (Death, Hospitalization)
  Sender: FDA-Public Use
  Company Number: FR-PFIZER INC-2009304854

PATIENT
  Age: 65 Year
  Sex: Male
  Weight: 80 kg

DRUGS (7)
  1. AVASTIN [Suspect]
     Indication: GLIOBLASTOMA
     Dosage: 850 MG, UNK
     Route: 042
     Dates: start: 20090803, end: 20090914
  2. PREDNISOLONE [Concomitant]
     Indication: ANTIINFLAMMATORY THERAPY
     Dosage: UNK
     Route: 048
     Dates: start: 20090601
  3. TEMODAL [Suspect]
     Indication: BRAIN NEOPLASM
  4. CAMPTOSAR [Suspect]
     Indication: BRAIN NEOPLASM
  5. AVASTIN [Suspect]
     Indication: BRAIN NEOPLASM
     Dosage: 760 MG, UNK
     Route: 042
     Dates: start: 20091013
  6. CAMPTOSAR [Suspect]
     Indication: GLIOBLASTOMA
     Dosage: 260 MG, UNK
     Route: 042
     Dates: start: 20090803, end: 20090914
  7. TEMODAL [Suspect]
     Indication: GLIOBLASTOMA
     Dosage: 145 MG, UNK
     Route: 048
     Dates: start: 20091012, end: 20091117

REACTIONS (6)
  - GASTROINTESTINAL PERFORATION [None]
  - LARGE INTESTINE PERFORATION [None]
  - DISEASE PROGRESSION [None]
  - COLONIC OBSTRUCTION [None]
  - HAEMORRHAGE [None]
  - GLIOBLASTOMA [None]
